FAERS Safety Report 10510851 (Version 1)
Quarter: 2014Q4

REPORT INFORMATION
  Report Type: Spontaneous
  Country: US (occurrence: None)
  Receive Date: 20141009
  Receipt Date: 20141009
  Transmission Date: 20150528
  Serious: No
  Sender: FDA-Public Use
  Company Number: None

PATIENT
  Age: 66 Year
  Sex: Male

DRUGS (1)
  1. BOTOX [Suspect]
     Active Substance: ONABOTULINUMTOXINA
     Dosage: TOTAL OF 300 UNITS  EVERY 3 MONTHS  SUBCUTANEOUSLY
     Route: 058
     Dates: start: 20140719

REACTIONS (4)
  - Dyspnoea [None]
  - Pain [None]
  - Neck pain [None]
  - Muscle disorder [None]

NARRATIVE: CASE EVENT DATE: 20141003
